FAERS Safety Report 14816711 (Version 2)
Quarter: 2018Q2

REPORT INFORMATION
  Report Type: Spontaneous
  Country: CA (occurrence: CA)
  Receive Date: 20180426
  Receipt Date: 20180619
  Transmission Date: 20180711
  Serious: Yes (Hospitalization)
  Sender: FDA-Public Use
  Company Number: CA-ACTELION-A-NJ2018-171029

PATIENT
  Age: 45 Year
  Sex: Female

DRUGS (10)
  1. TRACLEER [Suspect]
     Active Substance: BOSENTAN
     Indication: PULMONARY ARTERIAL HYPERTENSION
     Dosage: 125 MG, UNK
     Route: 048
     Dates: start: 20180301
  2. FOLIC ACID. [Concomitant]
     Active Substance: FOLIC ACID
  3. PARIET [Concomitant]
     Active Substance: RABEPRAZOLE SODIUM
  4. RITUXIMAB. [Concomitant]
     Active Substance: RITUXIMAB
  5. LASIX [Concomitant]
     Active Substance: FUROSEMIDE
  6. SEPTRA DS [Concomitant]
     Active Substance: SULFAMETHOXAZOLE\TRIMETHOPRIM
     Dosage: MON/WED/FRI
  7. VITAMIN D [Concomitant]
     Active Substance: CHOLECALCIFEROL
  8. SLOW-K [Concomitant]
     Active Substance: POTASSIUM CHLORIDE
  9. PREDNISONE. [Concomitant]
     Active Substance: PREDNISONE
  10. TYLENOL [Concomitant]
     Active Substance: ACETAMINOPHEN

REACTIONS (4)
  - Stoma creation [Not Recovered/Not Resolved]
  - Intestinal resection [Not Recovered/Not Resolved]
  - Gastrointestinal surgery [Not Recovered/Not Resolved]
  - Diverticulitis [Not Recovered/Not Resolved]

NARRATIVE: CASE EVENT DATE: 20180412
